FAERS Safety Report 9367195 (Version 1)
Quarter: 2013Q2

REPORT INFORMATION
  Report Type: Spontaneous
  Country: US (occurrence: US)
  Receive Date: 20130625
  Receipt Date: 20130625
  Transmission Date: 20140414
  Serious: No
  Sender: FDA-Public Use
  Company Number: US-ASTELLAS-2012US005310

PATIENT
  Age: 64 Year
  Sex: Female

DRUGS (8)
  1. VESICARE [Suspect]
     Indication: NOCTURIA
     Dosage: 5 MG, UID/QD
     Route: 048
     Dates: start: 201205
  2. GABAPENTIN [Concomitant]
     Indication: NEURALGIA
     Dosage: UNK
     Route: 065
  3. LABETALOL [Concomitant]
     Indication: HYPERTENSION
     Dosage: UNK
     Route: 065
  4. CYMBALTA [Concomitant]
     Indication: PRODUCT USED FOR UNKNOWN INDICATION
     Dosage: UNK
     Route: 065
  5. VIT D [Concomitant]
     Indication: PRODUCT USED FOR UNKNOWN INDICATION
     Dosage: UNK
     Route: 065
  6. IBUPROFEN [Concomitant]
     Indication: PRODUCT USED FOR UNKNOWN INDICATION
     Dosage: UNK
     Route: 065
  7. SYNTHROID [Concomitant]
     Indication: THYROID OPERATION
     Dosage: UNK
     Route: 065
  8. CHOLESTEROL MEDICATION [Concomitant]
     Indication: PRODUCT USED FOR UNKNOWN INDICATION
     Dosage: UNK
     Route: 065

REACTIONS (2)
  - Drug ineffective [Not Recovered/Not Resolved]
  - Off label use [Unknown]
